FAERS Safety Report 17904259 (Version 1)
Quarter: 2020Q2

REPORT INFORMATION
  Report Type: Report from Study
  Country: US (occurrence: US)
  Receive Date: 20200617
  Receipt Date: 20200617
  Transmission Date: 20200714
  Serious: Yes (Other)
  Sender: FDA-Public Use
  Company Number: US-BRISTOL-MYERS SQUIBB COMPANY-BMS-2020-031145

PATIENT
  Age: 64 Year
  Sex: Female
  Weight: 72.56 kg

DRUGS (9)
  1. ABATACEPT [Suspect]
     Active Substance: ABATACEPT
     Indication: RHEUMATOID ARTHRITIS
     Dosage: 125 MILLIGRAM, QWK
     Route: 058
  2. PREDNISOLONE. [Concomitant]
     Active Substance: PREDNISOLONE
     Indication: PRODUCT USED FOR UNKNOWN INDICATION
     Dosage: 1 MILLIGRAM, QD
     Route: 065
  3. CONCERTA [Concomitant]
     Active Substance: METHYLPHENIDATE HYDROCHLORIDE
     Indication: PRODUCT USED FOR UNKNOWN INDICATION
     Dosage: UNK
     Route: 065
  4. CLOZAPINE. [Concomitant]
     Active Substance: CLOZAPINE
     Indication: SLEEP DISORDER
     Dosage: UNK
     Route: 065
  5. NEOMYCIN. [Concomitant]
     Active Substance: NEOMYCIN
     Indication: PRODUCT USED FOR UNKNOWN INDICATION
     Dosage: UNK
     Route: 065
  6. PREDNISOLONE. [Concomitant]
     Active Substance: PREDNISOLONE
     Indication: INFECTION
     Dosage: 5 MILLIGRAM, QD
     Route: 065
  7. DEXAMETHASONE. [Concomitant]
     Active Substance: DEXAMETHASONE
     Indication: PRODUCT USED FOR UNKNOWN INDICATION
     Dosage: UNK
     Route: 065
  8. GABAPENTIN. [Concomitant]
     Active Substance: GABAPENTIN
     Indication: GASTRIC DISORDER
     Dosage: 800 MILLIGRAM, TID
     Route: 065
  9. POLYMYXIN [Concomitant]
     Active Substance: POLYMYXIN
     Indication: PRODUCT USED FOR UNKNOWN INDICATION
     Dosage: UNK
     Route: 065

REACTIONS (13)
  - Gastrointestinal disorder [Unknown]
  - Contusion [Unknown]
  - Nausea [Unknown]
  - Injection site swelling [Unknown]
  - Fatigue [Unknown]
  - Injection site bruising [Recovered/Resolved]
  - Product storage error [Unknown]
  - Conjunctivitis [Unknown]
  - Dizziness [Unknown]
  - Arthritis [Not Recovered/Not Resolved]
  - Abdominal discomfort [Unknown]
  - Vision blurred [Unknown]
  - Infected cyst [Unknown]

NARRATIVE: CASE EVENT DATE: 20200413
